FAERS Safety Report 6398764-3 (Version None)
Quarter: 2009Q4

REPORT INFORMATION
  Report Type: 
  Country: None (occurrence: None)
  Receive Date: 20091013
  Receipt Date: 20091009
  Transmission Date: 20100525
  Serious: Yes (Hospitalization)
  Sender: FDA-Public Use
  Company Number: US-WYE-H10927609

PATIENT
  Sex: Male

DRUGS (9)
  1. TORISEL [Suspect]
     Indication: PROSTATE CANCER
     Route: 042
     Dates: start: 20090826
  2. SENOKOT [Concomitant]
     Dosage: NOT PROVIDED
     Route: 065
  3. VITAMINS NOS [Concomitant]
     Dosage: NOT PROVIDED
     Route: 065
  4. ROSUVASTATIN CALCIUM [Concomitant]
     Dosage: NOT PROVIDED
     Route: 065
  5. CALCIUM PHOSPHATE/CALCIUM SODIUM LACTATE/ERGOCALCIFEROL [Concomitant]
     Dosage: NOT PROVIDED
     Route: 065
  6. METOPROLOL SUCCINATE [Concomitant]
     Dosage: NOT PROVIDED
     Route: 065
  7. TELMISARTAN/HYDROCHLOROTHIAZIDE [Concomitant]
     Dosage: NOT PROVIDED
     Route: 065
  8. IRON [Concomitant]
     Dosage: NOT PROVIDED
     Route: 065
  9. CYANOCOBALAMIN [Concomitant]
     Dosage: NOT PROVIDED
     Route: 065

REACTIONS (3)
  - ASTHENIA [None]
  - DEHYDRATION [None]
  - URINARY TRACT INFECTION [None]
